FAERS Safety Report 8416201-1 (Version None)
Quarter: 2012Q2

REPORT INFORMATION
  Report Type: 
  Country: None (occurrence: None)
  Receive Date: 20120530
  Receipt Date: 20120518
  Transmission Date: 20120825
  Serious: Yes (Hospitalization)
  Sender: FDA-Public Use
  Company Number: AUR-APL-2012-01764

PATIENT
  Age: 53 Year
  Sex: Female
  Weight: 82 kg

DRUGS (10)
  1. METFFORMIN HYDROCHLORIDE [Suspect]
     Indication: TYPE 2 DIABETES MELLITUS
     Dates: start: 20070817
  2. CIPRAMIL (CITALOPRAM) [Suspect]
     Indication: DEPRESSION
     Dates: start: 20060101
  3. ENALAPRIL MALEATE [Concomitant]
  4. MESALAMINE [Concomitant]
  5. CP-690,550 [Suspect]
     Indication: RHEUMATOID ARTHRITIS
     Dosage: 20 MG (10 MG, 2 IN 1 D), ORAL
     Route: 048
     Dates: start: 20100929, end: 20120117
  6. OMEPRAZOLE [Concomitant]
  7. PROTHIPENDYL (PROTHIPENDYL) [Suspect]
     Indication: DEPRESSION
     Dates: start: 20060101
  8. FOLIC ACID [Concomitant]
  9. METHOTREXATE SODIUM [Suspect]
     Indication: RHEUMATOID ARTHRITIS
     Dates: start: 20110923
  10. EPROSARTAN (EPROSARTAN) [Concomitant]

REACTIONS (4)
  - HAEMOGLOBIN DECREASED [None]
  - GENERAL PHYSICAL HEALTH DETERIORATION [None]
  - COLITIS [None]
  - HEPATIC STEATOSIS [None]
